FAERS Safety Report 8392026-0 (Version None)
Quarter: 2012Q2

REPORT INFORMATION
  Report Type: 
  Country: None (occurrence: None)
  Receive Date: 20120525
  Receipt Date: 20120525
  Transmission Date: 20120825
  Serious: Yes (Hospitalization)
  Sender: FDA-Public Use
  Company Number: None

PATIENT
  Sex: Female
  Weight: 51 kg

DRUGS (5)
  1. CYCLOPHOSPHAMIDE [Suspect]
     Dosage: 1734 MG
  2. RED BLOOD CELLS [Concomitant]
  3. TAXOTERE [Suspect]
     Dosage: 216 MG
  4. PANTOPRAZOLE SODIUM [Concomitant]
  5. MAXERAN [Concomitant]

REACTIONS (6)
  - HAEMATEMESIS [None]
  - SYNCOPE [None]
  - HAEMOGLOBIN DECREASED [None]
  - LOSS OF CONSCIOUSNESS [None]
  - HYPOTENSION [None]
  - GASTRODUODENAL ULCER [None]
